FAERS Safety Report 22229896 (Version 2)
Quarter: 2023Q2

REPORT INFORMATION
  Report Type: Other
  Country: US (occurrence: None)
  Receive Date: 20230419
  Receipt Date: 20230529
  Transmission Date: 20230722
  Serious: Yes (Other)
  Sender: FDA-Public Use
  Company Number: US-ROCHE-3329098

PATIENT
  Age: 47 Year
  Sex: Female

DRUGS (1)
  1. OCREVUS [Suspect]
     Active Substance: OCRELIZUMAB
     Indication: Relapsing multiple sclerosis
     Dosage: 600MG EVERY 6 MONTHS
     Route: 042

REACTIONS (14)
  - Parkinson^s disease [Unknown]
  - JC polyomavirus test positive [Unknown]
  - High density lipoprotein decreased [Unknown]
  - White blood cell count increased [Unknown]
  - Neutrophil count increased [Unknown]
  - Vitamin D deficiency [Unknown]
  - Hypoaesthesia [Unknown]
  - Paraesthesia [Unknown]
  - Memory impairment [Unknown]
  - Pollakiuria [Unknown]
  - Anxiety [Unknown]
  - Psoriasis [Unknown]
  - Human papilloma virus test positive [Unknown]
  - Fatigue [Unknown]
